FAERS Safety Report 9780223 (Version 1)
Quarter: 2013Q4

REPORT INFORMATION
  Report Type: Spontaneous
  Country: US (occurrence: US)
  Receive Date: 20131223
  Receipt Date: 20131223
  Transmission Date: 20140711
  Serious: Yes (Other)
  Sender: FDA-Public Use
  Company Number: CHPA2013US018387

PATIENT
  Age: 80 Year
  Sex: Female

DRUGS (1)
  1. VOLTAREN GEL [Suspect]
     Dosage: UNK
     Route: 061
     Dates: start: 2011

REACTIONS (1)
  - Glaucoma [Not Recovered/Not Resolved]
